FAERS Safety Report 7479191-4 (Version None)
Quarter: 2011Q2

REPORT INFORMATION
  Report Type: 
  Country: None (occurrence: None)
  Receive Date: 20110513
  Receipt Date: 20100513
  Transmission Date: 20111010
  Serious: Yes (Hospitalization)
  Sender: FDA-Public Use
  Company Number: A0860647A

PATIENT
  Age: 57 Year
  Sex: Male
  Weight: 118.2 kg

DRUGS (5)
  1. CIALIS [Concomitant]
  2. AVANDARYL [Suspect]
     Indication: DIABETES MELLITUS
     Route: 048
     Dates: start: 20031001, end: 20070126
  3. COZAAR [Concomitant]
  4. ALBUTEROL [Concomitant]
  5. METFORMIN HCL [Concomitant]

REACTIONS (6)
  - CARDIO-RESPIRATORY ARREST [None]
  - ATRIAL FIBRILLATION [None]
  - MYOCARDIAL INFARCTION [None]
  - CARDIAC FAILURE CONGESTIVE [None]
  - CORONARY ARTERY DISEASE [None]
  - HYPOXIC-ISCHAEMIC ENCEPHALOPATHY [None]
